FAERS Safety Report 4375168-6 (Version None)
Quarter: 2004Q2

REPORT INFORMATION
  Report Type: 
  Country: None (occurrence: None)
  Receive Date: 20040603
  Receipt Date: 20040524
  Transmission Date: 20050107
  Serious: Yes (Life-Threatening, Hospitalization)
  Sender: FDA-Public Use
  Company Number: EWC040539270

PATIENT
  Age: 36 Year
  Sex: Male

DRUGS (2)
  1. OLANZAPINE [Suspect]
     Indication: SCHIZOAFFECTIVE DISORDER
     Dosage: 300 MG DAY
     Dates: start: 20040507, end: 20040507
  2. VALPROIC ACID [Concomitant]

REACTIONS (10)
  - ALANINE AMINOTRANSFERASE INCREASED [None]
  - ASPARTATE AMINOTRANSFERASE INCREASED [None]
  - BLOOD ALKALINE PHOSPHATASE INCREASED [None]
  - COMA [None]
  - GAMMA-GLUTAMYLTRANSFERASE INCREASED [None]
  - OVERDOSE [None]
  - PNEUMONIA ASPIRATION [None]
  - RHABDOMYOLYSIS [None]
  - SUICIDE ATTEMPT [None]
  - WHITE BLOOD CELL COUNT INCREASED [None]
